APPROVED DRUG PRODUCT: FAMOTIDINE
Active Ingredient: FAMOTIDINE
Strength: 40MG
Dosage Form/Route: TABLET;ORAL
Application: A075639 | Product #001
Applicant: SUN PHARMACEUTICAL INDUSTRIES INC
Approved: Dec 12, 2001 | RLD: No | RS: No | Type: DISCN